FAERS Safety Report 24767217 (Version 1)
Quarter: 2024Q4

REPORT INFORMATION
  Report Type: Spontaneous
  Country: FR (occurrence: FR)
  Receive Date: 20241223
  Receipt Date: 20241223
  Transmission Date: 20250114
  Serious: Yes (Hospitalization)
  Sender: TEVA
  Company Number: None

PATIENT
  Age: 16 Year
  Sex: Male

DRUGS (5)
  1. METHOTREXATE [Suspect]
     Active Substance: METHOTREXATE
     Indication: Opportunistic infection prophylaxis
     Dosage: TIME INTERVAL: CYCLICAL
     Route: 042
     Dates: start: 20241113, end: 20241113
  2. CYTARABINE [Suspect]
     Active Substance: CYTARABINE
     Indication: Anaplastic large cell lymphoma T- and null-cell types
     Dosage: TIME INTERVAL: CYCLICAL
     Route: 042
     Dates: start: 20241116, end: 20241117
  3. IFOSFAMIDE [Suspect]
     Active Substance: IFOSFAMIDE
     Indication: Anaplastic large cell lymphoma T- and null-cell types
     Dosage: TIME INTERVAL: CYCLICAL
     Route: 042
     Dates: start: 20241113, end: 20241117
  4. ETOPOSIDE [Suspect]
     Active Substance: ETOPOSIDE
     Indication: Anaplastic large cell lymphoma T- and null-cell types
     Dosage: TIME INTERVAL: CYCLICAL
     Route: 042
     Dates: start: 20241116, end: 20241117
  5. VALACYCLOVIR HYDROCHLORIDE [Suspect]
     Active Substance: VALACYCLOVIR HYDROCHLORIDE
     Indication: Opportunistic infection prophylaxis
     Route: 048
     Dates: start: 20241118, end: 20241121

REACTIONS (1)
  - Hepatic cytolysis [Recovering/Resolving]

NARRATIVE: CASE EVENT DATE: 20241121
